FAERS Safety Report 13261935 (Version 2)
Quarter: 2017Q2

REPORT INFORMATION
  Report Type: Spontaneous
  Country: CA (occurrence: CA)
  Receive Date: 20170222
  Receipt Date: 20170410
  Transmission Date: 20170830
  Serious: Yes (Death)
  Sender: FDA-Public Use
  Company Number: CA-ALLERGAN-1706267US

PATIENT
  Age: 54 Year
  Sex: Female

DRUGS (1)
  1. URSO [Suspect]
     Active Substance: URSODIOL
     Indication: PRODUCT USED FOR UNKNOWN INDICATION
     Dosage: 500 MG, UNK
     Route: 065

REACTIONS (4)
  - Aortic stenosis [Fatal]
  - Hepatic failure [Fatal]
  - Malignant neoplasm of unknown primary site [Fatal]
  - Chronic hepatic failure [Fatal]
